FAERS Safety Report 5091641-X (Version None)
Quarter: 2006Q3

REPORT INFORMATION
  Report Type: 
  Country: None (occurrence: None)
  Receive Date: 20060829
  Receipt Date: 20060726
  Transmission Date: 20061208
  Serious: Yes (Other)
  Sender: FDA-Public Use
  Company Number: AU-SANOFI-SYNTHELABO-A01200605845

PATIENT
  Sex: Female

DRUGS (6)
  1. FLUOROURACIL [Concomitant]
     Route: 042
     Dates: start: 20060818
  2. CALCIUM/MAGNESIUM [Concomitant]
     Route: 042
     Dates: start: 20060818
  3. DEXAMETHASONE [Concomitant]
     Route: 042
     Dates: start: 20060705
  4. DOLASETRON [Concomitant]
     Route: 042
     Dates: start: 20060705
  5. ELOXATIN [Suspect]
     Indication: COLORECTAL CANCER
     Route: 042
     Dates: start: 20060705, end: 20060705
  6. ELOXATIN [Suspect]
     Route: 042
     Dates: start: 20060816, end: 20060816

REACTIONS (2)
  - HYPERSENSITIVITY [None]
  - RENAL FAILURE ACUTE [None]
